FAERS Safety Report 8954657 (Version 1)
Quarter: 2012Q4

REPORT INFORMATION
  Report Type: Spontaneous
  Country: US (occurrence: None)
  Receive Date: 20121205
  Receipt Date: 20121205
  Transmission Date: 20130627
  Serious: Yes (Other)
  Sender: FDA-Public Use
  Company Number: None

PATIENT
  Sex: Female
  Weight: 116.12 kg

DRUGS (3)
  1. TRAMADOL HCL [Suspect]
     Indication: PAIN
     Route: 048
     Dates: start: 201205, end: 201210
  2. TRAMADOL HCL [Suspect]
     Indication: EXHAUSTION
     Route: 048
     Dates: start: 201205, end: 201210
  3. TRAMADOL HCL [Suspect]
     Indication: BACK PAIN
     Route: 048
     Dates: start: 201205, end: 201210

REACTIONS (8)
  - Dry skin [None]
  - Constipation [None]
  - Lethargy [None]
  - Alopecia [None]
  - Decreased appetite [None]
  - Onychoclasis [None]
  - Onychoclasis [None]
  - Food aversion [None]
